FAERS Safety Report 8121645 (Version 4)
Quarter: 2013Q2

REPORT INFORMATION
  Report Type: Spontaneous
  Country: JP (occurrence: JP)
  Receive Date: 20110906
  Receipt Date: 20130419
  Transmission Date: 20140414
  Serious: Yes (Hospitalization)
  Sender: FDA-Public Use
  Company Number: JP-GLAXOSMITHKLINE-B0744044A

PATIENT
  Age: 38 Year
  Sex: Female

DRUGS (6)
  1. LAMICTAL [Suspect]
     Indication: EPILEPSY
     Dosage: 25MG PER DAY
     Route: 048
     Dates: start: 20110815, end: 20110825
  2. LAMICTAL [Suspect]
     Indication: EPILEPSY
     Dosage: 25MG TWICE PER DAY
     Route: 048
     Dates: start: 20110826, end: 20110828
  3. ALEVIATIN [Suspect]
     Indication: TEMPORAL LOBE EPILEPSY
     Route: 048
     Dates: start: 20110606, end: 20110828
  4. TEGRETOL [Suspect]
     Indication: TEMPORAL LOBE EPILEPSY
     Route: 048
  5. TEGRETOL [Suspect]
     Indication: TEMPORAL LOBE EPILEPSY
     Dosage: 100MG THREE TIMES PER DAY
     Route: 048
     Dates: start: 20110823, end: 20110826
  6. DEPAKENE [Concomitant]
     Indication: TEMPORAL LOBE EPILEPSY
     Dosage: 200MG THREE TIMES PER DAY
     Route: 048
     Dates: start: 20110826

REACTIONS (19)
  - Liver disorder [Recovered/Resolved]
  - Altered state of consciousness [Recovered/Resolved]
  - Drug reaction with eosinophilia and systemic symptoms [Recovered/Resolved]
  - Pyrexia [Recovered/Resolved]
  - Rash [Recovered/Resolved]
  - Rash [Unknown]
  - Lymphadenopathy [Recovered/Resolved]
  - Arthralgia [Unknown]
  - Disseminated intravascular coagulation [Unknown]
  - Cytokine storm [Unknown]
  - Encephalopathy [Unknown]
  - Hepatic steatosis [Unknown]
  - Hepatic adenoma [Unknown]
  - Epilepsy [Unknown]
  - Epilepsy [Unknown]
  - Epilepsy [Unknown]
  - Myalgia [Unknown]
  - Liver function test abnormal [Recovered/Resolved]
  - Depressed level of consciousness [Unknown]
